FAERS Safety Report 26130201 (Version 2)
Quarter: 2025Q4

REPORT INFORMATION
  Report Type: Spontaneous
  Country: US (occurrence: US)
  Receive Date: 20251208
  Receipt Date: 20251212
  Transmission Date: 20260118
  Serious: Yes (Hospitalization, Other)
  Sender: SANOFI AVENTIS
  Company Number: US-SA-2025SA362538

PATIENT
  Age: 44 Year
  Sex: Male

DRUGS (3)
  1. ALPROLIX [Suspect]
     Active Substance: EFTRENONACOG ALFA
     Indication: Factor IX deficiency
     Dosage: 3400 IU (3060-3740), TWICE A WEEK AND DAILY AS NEEDED FOR BLEEDING
     Route: 042
     Dates: start: 201504
  2. ALPROLIX [Suspect]
     Active Substance: EFTRENONACOG ALFA
     Indication: Factor IX deficiency
     Dosage: 3400 IU (3060-3740), TWICE A WEEK AND DAILY AS NEEDED FOR BLEEDING
     Route: 042
     Dates: start: 201504
  3. POTASSIUM;SODIUM CHLORIDE [Concomitant]
     Dosage: UNK

REACTIONS (2)
  - Pneumonia [Unknown]
  - Oxygen saturation decreased [Unknown]

NARRATIVE: CASE EVENT DATE: 20250101
